FAERS Safety Report 6120296-8 (Version None)
Quarter: 2009Q1

REPORT INFORMATION
  Report Type: 
  Country: None (occurrence: None)
  Receive Date: 20090312
  Receipt Date: 20090225
  Transmission Date: 20090719
  Serious: Yes (Other)
  Sender: FDA-Public Use
  Company Number: 2009S1002321

PATIENT
  Weight: 0.79 kg

DRUGS (8)
  1. LABETALOL (LABETALOL) (100 MG) [Suspect]
     Indication: DRUG USE FOR UNKNOWN INDICATION
     Dosage: 100 MG; DAILY;  TRANS PLACENTAL
     Route: 064
  2. HYDRALAZINE HCL [Suspect]
     Indication: BLOOD PRESSURE INCREASED
     Dosage: TRANSPLACENTAL
     Route: 064
  3. METHYLDOPA [Suspect]
     Indication: DRUG USE FOR UNKNOWN INDICATION
     Dosage: 250 MG; 3 TIMES A DAY; TRANSPLACENTAL
     Route: 064
  4. NIFEDIPINE [Suspect]
     Indication: BLOOD PRESSURE INCREASED
  5. ACETYLSALICYLIC ACID [Concomitant]
  6. BETAMETHASONE [Concomitant]
  7. DALTEPARIN SODIUM [Concomitant]
  8. PHOSPHOLIPIDS [Concomitant]

REACTIONS (5)
  - BLOOD GLUCOSE ABNORMAL [None]
  - CAESAREAN SECTION [None]
  - FOETAL GROWTH RETARDATION [None]
  - HYPOGLYCAEMIA [None]
  - MATERNAL DRUGS AFFECTING FOETUS [None]
